FAERS Safety Report 16907846 (Version 1)
Quarter: 2019Q4

REPORT INFORMATION
  Report Type: Spontaneous
  Country: DE (occurrence: DE)
  Receive Date: 20191011
  Receipt Date: 20191011
  Transmission Date: 20200122
  Serious: Yes (Congenital Anomaly, Other)
  Sender: FDA-Public Use
  Company Number: DE-AUROBINDO-AUR-APL-2019-065926

PATIENT
  Sex: Male
  Weight: .29 kg

DRUGS (4)
  1. LAMOTRIGINE. [Suspect]
     Active Substance: LAMOTRIGINE
     Dosage: 225 MILLIGRAM, DAILY
     Route: 064
  2. LAMOTRIGINE. [Suspect]
     Active Substance: LAMOTRIGINE
     Indication: EPILEPSY
     Dosage: 375 MILLIGRAM, DAILY
     Route: 064
     Dates: end: 20080616
  3. VALPROAT [Suspect]
     Active Substance: VALPROATE SODIUM
     Indication: EPILEPSY
     Dosage: 1750 MILLIGRAM, DAILY
     Route: 064
     Dates: end: 20080616
  4. KEPPRA [Suspect]
     Active Substance: LEVETIRACETAM
     Indication: EPILEPSY
     Dosage: 750 MILLIGRAM, DAILY
     Route: 064
     Dates: end: 20080616

REACTIONS (4)
  - Cardiopulmonary failure [Unknown]
  - Foetal exposure during pregnancy [Unknown]
  - Low birth weight baby [Unknown]
  - Birth mark [Unknown]

NARRATIVE: CASE EVENT DATE: 20080616
